FAERS Safety Report 12750881 (Version 1)
Quarter: 2016Q3

REPORT INFORMATION
  Report Type: Spontaneous
  Country: US (occurrence: US)
  Receive Date: 20160915
  Receipt Date: 20160915
  Transmission Date: 20161109
  Serious: No
  Sender: FDA-Public Use
  Company Number: US-ASTELLAS-2016US020283

PATIENT
  Sex: Male

DRUGS (1)
  1. XTANDI [Suspect]
     Active Substance: ENZALUTAMIDE
     Indication: PROSTATE CANCER
     Route: 048

REACTIONS (5)
  - Seasonal allergy [Recovering/Resolving]
  - Back pain [Recovering/Resolving]
  - Tonsillitis [Recovering/Resolving]
  - Peripheral swelling [Not Recovered/Not Resolved]
  - Dyspnoea [Unknown]
